FAERS Safety Report 7783063-5 (Version None)
Quarter: 2011Q3

REPORT INFORMATION
  Report Type: 
  Country: None (occurrence: None)
  Receive Date: 20110928
  Receipt Date: 20110926
  Transmission Date: 20111222
  Serious: No
  Sender: FDA-Public Use
  Company Number: US-PFIZER INC-2011229201

PATIENT
  Sex: Female

DRUGS (9)
  1. CHANTIX [Suspect]
     Indication: SMOKING CESSATION THERAPY
     Dosage: 0.5 MG, 1X/DAY
     Route: 048
     Dates: start: 20110904, end: 20110901
  2. CHANTIX [Suspect]
     Dosage: 0.5 MG, 2X/DAY
     Route: 048
     Dates: start: 20110901
  3. PREDNISONE [Concomitant]
     Indication: RHEUMATOID ARTHRITIS
     Dosage: 5 MG, 1X/DAY
  4. RAMIPRIL [Concomitant]
     Dosage: 10 MG, 2X/DAY
  5. HUMIRA [Concomitant]
     Dosage: 40MG/0.8ML, EVERY OTHER WEEK
     Route: 058
  6. IBUPROFEN [Concomitant]
     Dosage: 800 MG, AS NEEDED
  7. AMLODIPINE [Concomitant]
     Indication: HYPERTENSION
     Dosage: 2.5 MG, 1X/DAY
  8. LEVOXYL [Concomitant]
     Dosage: 0.15 MG, 1X/DAY
  9. FOSAMAX [Concomitant]
     Dosage: 70 MG, WEEKLY

REACTIONS (3)
  - DYSGEUSIA [None]
  - VOMITING [None]
  - NAUSEA [None]
